FAERS Safety Report 10062208 (Version 1)
Quarter: 2014Q2

REPORT INFORMATION
  Report Type: Spontaneous
  Country: US (occurrence: None)
  Receive Date: 20140404
  Receipt Date: 20140404
  Transmission Date: 20141212
  Serious: Yes (Hospitalization)
  Sender: FDA-Public Use
  Company Number: None

PATIENT
  Age: 6 Year
  Sex: Female
  Weight: 37.1 kg

DRUGS (3)
  1. CYCLOPHOSPHAMIDE [Suspect]
  2. CYTARABINE [Suspect]
  3. THIOGUANINE (6-TG) [Concomitant]

REACTIONS (3)
  - Pyrexia [None]
  - Neutropenia [None]
  - Respiratory failure [None]
